FAERS Safety Report 8363510-0 (Version None)
Quarter: 2012Q2

REPORT INFORMATION
  Report Type: 
  Country: None (occurrence: None)
  Receive Date: 20120516
  Receipt Date: 20120511
  Transmission Date: 20120825
  Serious: Yes (Death)
  Sender: FDA-Public Use
  Company Number: CO-PFIZER INC-2012083205

PATIENT
  Sex: Male

DRUGS (5)
  1. METOPROLOL TARTRATE [Concomitant]
     Dosage: 100MG THREE TIMES DAILY
  2. ASPIRIN [Concomitant]
     Dosage: 100MG ONCE DAILY
  3. LOSARTAN [Concomitant]
     Dosage: 50MG TWICE DAILY
  4. LIPITOR [Suspect]
     Dosage: 10 MG, ONCE DAILY
     Dates: start: 20080103
  5. AMLODIPINE BESILATE [Concomitant]
     Dosage: 5MG TWICE DAILY

REACTIONS (1)
  - DEATH [None]
